FAERS Safety Report 5206839-7 (Version None)
Quarter: 2006Q4

REPORT INFORMATION
  Report Type: 
  Country: None (occurrence: None)
  Receive Date: 20061026
  Receipt Date: 20060822
  Transmission Date: 20070319
  Serious: No
  Sender: FDA-Public Use
  Company Number: 2006102950

PATIENT
  Age: 40 Year
  Sex: Male

DRUGS (3)
  1. LYRICA [Suspect]
     Indication: BONE PAIN
     Dosage: 150 MG (50 MG, 3 IN 1 D), ORAL
     Route: 048
     Dates: start: 20060701
  2. DICLOFENAC SODIUM [Concomitant]
  3. PERCOCET [Concomitant]

REACTIONS (1)
  - DRUG SCREEN POSITIVE [None]
